FAERS Safety Report 21246113 (Version 8)
Quarter: 2023Q1

REPORT INFORMATION
  Report Type: Report from Study
  Country: US (occurrence: US)
  Receive Date: 20220824
  Receipt Date: 20230310
  Transmission Date: 20230417
  Serious: No
  Sender: FDA-Public Use
  Company Number: US-NOVARTISTESTPH-NVSC2022US188632

PATIENT
  Sex: Female

DRUGS (1)
  1. COSENTYX [Suspect]
     Active Substance: SECUKINUMAB
     Indication: Product used for unknown indication
     Dosage: 300 MG, QMO
     Route: 058

REACTIONS (7)
  - Insomnia [Unknown]
  - Feeding disorder [Unknown]
  - General physical health deterioration [Unknown]
  - Condition aggravated [Unknown]
  - Rash [Unknown]
  - Skin lesion [Unknown]
  - Product administration error [Unknown]
